FAERS Safety Report 5987298-3 (Version None)
Quarter: 2008Q4

REPORT INFORMATION
  Report Type: 
  Country: None (occurrence: None)
  Receive Date: 20081209
  Receipt Date: 20081201
  Transmission Date: 20090506
  Serious: Yes (Other)
  Sender: FDA-Public Use
  Company Number: US-ALLERGAN-0815250US

PATIENT
  Sex: Female

DRUGS (3)
  1. ACULAR LS [Suspect]
     Indication: INFLAMMATION
     Dosage: 1 GTT, QID
     Route: 047
     Dates: start: 20081125
  2. ZYMAR [Suspect]
     Indication: DRUG USE FOR UNKNOWN INDICATION
     Dosage: 1 GTT, QID
     Route: 047
     Dates: start: 20081125
  3. PRED FORTE [Suspect]
     Indication: DRUG USE FOR UNKNOWN INDICATION
     Dosage: 1 GTT, QID
     Route: 047
     Dates: start: 20081125

REACTIONS (1)
  - FACE OEDEMA [None]
